FAERS Safety Report 7334825-X (Version None)
Quarter: 2011Q1

REPORT INFORMATION
  Report Type: 
  Country: None (occurrence: None)
  Receive Date: 20110307
  Receipt Date: 20110225
  Transmission Date: 20110831
  Serious: Yes (Other)
  Sender: FDA-Public Use
  Company Number: AU-AMGEN-QUU436194

PATIENT
  Age: 69 Year
  Sex: Male

DRUGS (1)
  1. ARANESP [Suspect]
     Indication: PRODUCT USED FOR UNKNOWN INDICATION
     Dosage: 200 A?G, QWK

REACTIONS (4)
  - DRUG INEFFECTIVE [None]
  - ANAEMIA [None]
  - OCCULT BLOOD POSITIVE [None]
  - PLATELET COUNT ABNORMAL [None]
